FAERS Safety Report 11132543 (Version 1)
Quarter: 2015Q2

REPORT INFORMATION
  Report Type: Spontaneous
  Country: US (occurrence: US)
  Receive Date: 20150522
  Receipt Date: 20150522
  Transmission Date: 20150821
  Serious: Yes (Hospitalization, Other)
  Sender: FDA-Public Use
  Company Number: US-ASTRAZENECA-2015SE45604

PATIENT
  Age: 66 Year
  Sex: Male

DRUGS (6)
  1. MOTRIN [Concomitant]
     Active Substance: IBUPROFEN
  2. SUDAPHED [Concomitant]
  3. DEXAMETHASONE. [Concomitant]
     Active Substance: DEXAMETHASONE
  4. PRILOSEC [Suspect]
     Active Substance: OMEPRAZOLE MAGNESIUM
     Route: 048
  5. BORTEZOMIB [Concomitant]
     Active Substance: BORTEZOMIB
  6. METHADONE [Concomitant]
     Active Substance: METHADONE HYDROCHLORIDE

REACTIONS (8)
  - Plasma cell myeloma [Unknown]
  - Hyperphosphataemia [Unknown]
  - Paraproteinaemia [Unknown]
  - Chronic hepatitis C [Unknown]
  - Urinary tract infection [Unknown]
  - Pseudohyperphosphataemia [Unknown]
  - Sepsis [Unknown]
  - Barrett^s oesophagus [Unknown]
